FAERS Safety Report 20578999 (Version 2)
Quarter: 2022Q1

REPORT INFORMATION
  Report Type: Spontaneous
  Country: US (occurrence: US)
  Receive Date: 20220310
  Receipt Date: 20220323
  Transmission Date: 20220423
  Serious: Yes (Life-Threatening, Hospitalization, Other)
  Sender: FDA-Public Use
  Company Number: US-PFIZER INC-202200354863

PATIENT
  Age: 15 Year
  Sex: Male

DRUGS (3)
  1. METHOTREXATE SODIUM [Suspect]
     Active Substance: METHOTREXATE SODIUM
     Indication: Osteosarcoma
     Dosage: UNK
  2. ADRIAMYCIN [Concomitant]
     Active Substance: DOXORUBICIN HYDROCHLORIDE
     Indication: Osteosarcoma
     Dosage: UNK
  3. CISPLATIN [Concomitant]
     Active Substance: CISPLATIN
     Indication: Osteosarcoma
     Dosage: UNK

REACTIONS (1)
  - Neurotoxicity [Recovered/Resolved]
